FAERS Safety Report 22355547 (Version 1)
Quarter: 2023Q2

REPORT INFORMATION
  Report Type: Spontaneous
  Country: US (occurrence: US)
  Receive Date: 20230523
  Receipt Date: 20230523
  Transmission Date: 20230721
  Serious: No
  Sender: FDA-Public Use
  Company Number: US-PFIZER INC-US-GBT-014668

PATIENT
  Age: 13 Year
  Sex: Male

DRUGS (2)
  1. OXBRYTA [Suspect]
     Active Substance: VOXELOTOR
     Indication: Sickle cell disease
     Dosage: THREE TABLETS OF 300 MG TABLETS FOR ORAL SUSPENSION
     Route: 048
     Dates: start: 202205
  2. OXBRYTA [Suspect]
     Active Substance: VOXELOTOR
     Dosage: 900 MG, DAILY
     Route: 048
     Dates: start: 202204

REACTIONS (3)
  - Diarrhoea [Unknown]
  - Product dose omission in error [Unknown]
  - Off label use [Unknown]

NARRATIVE: CASE EVENT DATE: 20220501
